FAERS Safety Report 7453209-7 (Version None)
Quarter: 2011Q2

REPORT INFORMATION
  Report Type: 
  Country: None (occurrence: None)
  Receive Date: 20110502
  Receipt Date: 20110420
  Transmission Date: 20111010
  Serious: No
  Sender: FDA-Public Use
  Company Number: US-PFIZER INC-2011087012

PATIENT
  Sex: Male

DRUGS (2)
  1. THERMACARE LOWER BACK + HIP [Suspect]
     Dosage: UNK
  2. ADVIL LIQUI-GELS [Suspect]

REACTIONS (2)
  - BLISTER [None]
  - THERMAL BURN [None]
